FAERS Safety Report 4839170-X (Version None)
Quarter: 2005Q4

REPORT INFORMATION
  Report Type: 
  Country: None (occurrence: None)
  Receive Date: 20051031
  Receipt Date: 20050706
  Transmission Date: 20060501
  Serious: No
  Sender: FDA-Public Use
  Company Number: 200513414US

PATIENT
  Sex: Female

DRUGS (1)
  1. KETEK [Suspect]
     Indication: ACUTE SINUSITIS
     Dosage: 800 MG

REACTIONS (3)
  - DIPLOPIA [None]
  - VISION BLURRED [None]
  - VISUAL DISTURBANCE [None]
